FAERS Safety Report 6234650-7 (Version None)
Quarter: 2009Q2

REPORT INFORMATION
  Report Type: 
  Country: None (occurrence: None)
  Receive Date: 20090618
  Receipt Date: 20090608
  Transmission Date: 20091009
  Serious: Yes (Hospitalization)
  Sender: FDA-Public Use
  Company Number: US-AMGEN-KDL350696

PATIENT
  Sex: Female

DRUGS (1)
  1. ENBREL [Suspect]
     Indication: PSORIASIS
     Route: 058
     Dates: start: 20081008

REACTIONS (4)
  - CONDITION AGGRAVATED [None]
  - OSTEOARTHRITIS [None]
  - PSORIASIS [None]
  - STAPHYLOCOCCAL INFECTION [None]
